FAERS Safety Report 8306436-0 (Version None)
Quarter: 2012Q2

REPORT INFORMATION
  Report Type: 
  Country: None (occurrence: None)
  Receive Date: 20120423
  Receipt Date: 20120413
  Transmission Date: 20120825
  Serious: Yes (Hospitalization)
  Sender: FDA-Public Use
  Company Number: US-BRISTOL-MYERS SQUIBB COMPANY-16215451

PATIENT
  Age: 85 Year
  Sex: Female
  Weight: 65 kg

DRUGS (1)
  1. WARFARIN SODIUM [Suspect]
     Dosage: 1MG: MONDAYS-THURSDAYS, 2MG: FRIDAYS-SUNDAYS. 1MG 60 PILLS
     Route: 048

REACTIONS (5)
  - INTERNATIONAL NORMALISED RATIO FLUCTUATION [None]
  - SKIN DISCOLOURATION [None]
  - LOSS OF CONSCIOUSNESS [None]
  - LACERATION [None]
  - FALL [None]
